FAERS Safety Report 6789992-3 (Version None)
Quarter: 2010Q2

REPORT INFORMATION
  Report Type: 
  Country: None (occurrence: None)
  Receive Date: 20100520
  Receipt Date: 20090813
  Transmission Date: 20101027
  Serious: Yes (Hospitalization, Other)
  Sender: FDA-Public Use
  Company Number: 2008064925

PATIENT
  Age: 54 Year
  Sex: Female
  Weight: 136 kg

DRUGS (4)
  1. PROVERA [Suspect]
     Indication: HORMONE REPLACEMENT THERAPY
     Dosage: ORAL
     Route: 048
     Dates: start: 19970801, end: 19980501
  2. PREMARIN [Suspect]
     Indication: HORMONE REPLACEMENT THERAPY
     Dates: start: 19980601, end: 20020201
  3. PRINIVIL [Concomitant]
  4. METFORMIN HCL [Concomitant]

REACTIONS (1)
  - BREAST CANCER FEMALE [None]
